FAERS Safety Report 14107897 (Version 8)
Quarter: 2018Q1

REPORT INFORMATION
  Report Type: Report from Study
  Country: CA (occurrence: CA)
  Receive Date: 20171019
  Receipt Date: 20180221
  Transmission Date: 20180508
  Serious: Yes (Hospitalization, Other)
  Sender: FDA-Public Use
  Company Number: CA-GLAXOSMITHKLINE-CA2017GSK089876

PATIENT
  Age: 42 Year
  Sex: Female

DRUGS (5)
  1. MEPOLIZUMAB [Suspect]
     Active Substance: MEPOLIZUMAB
     Indication: ASTHMA
     Dosage: 100 MG, Z(MONTHLY)
     Route: 042
  2. MEPOLIZUMAB [Suspect]
     Active Substance: MEPOLIZUMAB
     Dosage: 100 MG, Z (MONTHLY)
     Route: 042
  3. MEPOLIZUMAB [Suspect]
     Active Substance: MEPOLIZUMAB
     Dosage: 100 MG, MONTHLY
     Route: 042
  4. MEPOLIZUMAB [Suspect]
     Active Substance: MEPOLIZUMAB
     Dosage: 100 MG, Z(MONTHLY)
     Route: 042
  5. OTEZLA [Concomitant]
     Active Substance: APREMILAST
     Indication: PRODUCT USED FOR UNKNOWN INDICATION
     Dosage: UNK

REACTIONS (21)
  - Aphonia [Unknown]
  - Wheezing [Unknown]
  - Sputum discoloured [Unknown]
  - General physical health deterioration [Unknown]
  - Drug dose omission [Unknown]
  - Lung infection [Unknown]
  - Dyspnoea [Unknown]
  - Sinus pain [Unknown]
  - Influenza [Unknown]
  - Oropharyngeal pain [Unknown]
  - Cough [Unknown]
  - Staphylococcal infection [Unknown]
  - Adverse event [Unknown]
  - Sinusitis [Unknown]
  - Hospitalisation [Unknown]
  - Sinusitis bacterial [Unknown]
  - Drug ineffective [Unknown]
  - Ill-defined disorder [Unknown]
  - Bronchospasm [Recovering/Resolving]
  - Lung disorder [Unknown]
  - Increased viscosity of upper respiratory secretion [Unknown]

NARRATIVE: CASE EVENT DATE: 20171005
